FAERS Safety Report 23124118 (Version 1)
Quarter: 2023Q4

REPORT INFORMATION
  Report Type: Spontaneous
  Country: US (occurrence: US)
  Receive Date: 20231030
  Receipt Date: 20231030
  Transmission Date: 20240110
  Serious: Yes (Hospitalization, Other)
  Sender: FDA-Public Use
  Company Number: US-MYLANLABS-2023M1114003

PATIENT
  Age: 7 Decade
  Sex: Female

DRUGS (7)
  1. METHOTREXATE [Suspect]
     Active Substance: METHOTREXATE
     Indication: Metastases to meninges
     Dosage: 12 MILLIGRAM, QW; INITIATED ON CYCLE 1 DAY 27; THROUGH OMMAYA RESERVOIR
     Route: 037
  2. METHOTREXATE [Suspect]
     Active Substance: METHOTREXATE
     Dosage: 6 MILLIGRAM; SIXTH DOSE HELD AND AFTER 1 WEEK DELAY, DOSE REDUCED TO 6MG
     Route: 037
  3. DEXAMETHASONE [Suspect]
     Active Substance: DEXAMETHASONE
     Indication: Metastases to meninges
     Dosage: 4 MILLIGRAM, Q6H
     Route: 042
  4. ABEMACICLIB [Suspect]
     Active Substance: ABEMACICLIB
     Indication: Metastases to meninges
     Dosage: 150 MILLIGRAM, BID; DISCONTINUED ON CYCLE 1 DAY 15 AND LATER RE-INITIATED IN WEEK 10..
     Route: 048
  5. ABEMACICLIB [Suspect]
     Active Substance: ABEMACICLIB
     Indication: Metastases to lymph nodes
  6. EXEMESTANE [Concomitant]
     Active Substance: EXEMESTANE
     Indication: Invasive ductal breast carcinoma
     Dosage: UNK
     Route: 065
  7. FULVESTRANT [Concomitant]
     Active Substance: FULVESTRANT
     Indication: Metastases to lymph nodes
     Dosage: 500 MILLIGRAM, 28D CYCLE; WITH A LOADING DOSE ON CYCLE 1 DAY 15
     Route: 030

REACTIONS (5)
  - Pancytopenia [Recovering/Resolving]
  - Drug ineffective [Unknown]
  - Malaise [Recovering/Resolving]
  - Asthenia [Recovering/Resolving]
  - Mouth ulceration [Recovering/Resolving]
